FAERS Safety Report 25252301 (Version 3)
Quarter: 2025Q2

REPORT INFORMATION
  Report Type: Spontaneous
  Country: FR (occurrence: FR)
  Receive Date: 20250429
  Receipt Date: 20250512
  Transmission Date: 20250717
  Serious: Yes (Death, Hospitalization)
  Sender: MERCK SHARP & DOHME LLC
  Company Number: FR-009507513-2280077

PATIENT
  Age: 55 Year
  Sex: Male

DRUGS (1)
  1. JANUMET [Suspect]
     Active Substance: METFORMIN HYDROCHLORIDE\SITAGLIPTIN PHOSPHATE
     Route: 048

REACTIONS (2)
  - Pancreatitis necrotising [Fatal]
  - Organ failure [Fatal]

NARRATIVE: CASE EVENT DATE: 20140101
